FAERS Safety Report 9846318 (Version 1)
Quarter: 2013Q4

REPORT INFORMATION
  Report Type: Spontaneous
  Country: US (occurrence: None)
  Receive Date: 20131223
  Receipt Date: 20131223
  Transmission Date: 20140711
  Serious: No
  Sender: FDA-Public Use
  Company Number: CABO-13003279

PATIENT
  Age: 52 Year
  Sex: Female

DRUGS (1)
  1. COMETRIQ [Suspect]
     Indication: THYROID CANCER
     Route: 048
     Dates: start: 20130820, end: 2013

REACTIONS (6)
  - Neck pain [None]
  - Dermatitis acneiform [None]
  - Gait disturbance [None]
  - Ageusia [None]
  - Blister [None]
  - Pain in extremity [None]
